FAERS Safety Report 10258537 (Version 1)
Quarter: 2014Q2

REPORT INFORMATION
  Report Type: Spontaneous
  Country: US (occurrence: None)
  Receive Date: 20140624
  Receipt Date: 20140624
  Transmission Date: 20141212
  Serious: No
  Sender: FDA-Public Use
  Company Number: None

PATIENT
  Age: 52 Year
  Sex: Female
  Weight: 64.3 kg

DRUGS (2)
  1. CAMPTOSAR [Suspect]
  2. ERBITUX [Suspect]

REACTIONS (1)
  - Neutrophil count abnormal [None]
